FAERS Safety Report 9288320 (Version 1)
Quarter: 2013Q2

REPORT INFORMATION
  Report Type: Spontaneous
  Country: US (occurrence: US)
  Receive Date: 20130514
  Receipt Date: 20130514
  Transmission Date: 20140414
  Serious: Yes (Other)
  Sender: FDA-Public Use
  Company Number: US-PFIZER INC-2013144602

PATIENT
  Age: 55 Year
  Sex: Female
  Weight: 40.8 kg

DRUGS (1)
  1. EXEMESTANE [Suspect]
     Dosage: 25 MG, 1X/DAY
     Route: 048
     Dates: start: 201303

REACTIONS (1)
  - Fungal infection [Unknown]
